FAERS Safety Report 4931272-2 (Version None)
Quarter: 2006Q1

REPORT INFORMATION
  Report Type: 
  Country: None (occurrence: None)
  Receive Date: 20060302
  Receipt Date: 20051104
  Transmission Date: 20060701
  Serious: Yes (Hospitalization, Other)
  Sender: FDA-Public Use
  Company Number: US-MERCK-0511USA01064

PATIENT
  Age: 46 Year
  Sex: Female
  Weight: 57 kg

DRUGS (10)
  1. VIOXX [Suspect]
     Indication: BACK PAIN
     Route: 048
     Dates: start: 19990722, end: 20010601
  2. COUMADIN [Concomitant]
     Indication: THROMBOSIS
     Route: 065
     Dates: start: 19990101
  3. COUMADIN [Concomitant]
     Indication: DEEP VEIN THROMBOSIS
     Route: 065
     Dates: start: 19990101
  4. WARFARIN [Concomitant]
     Indication: THROMBOSIS
     Route: 065
     Dates: start: 20000101, end: 20010101
  5. WARFARIN [Concomitant]
     Indication: DEEP VEIN THROMBOSIS
     Route: 065
     Dates: start: 20000101, end: 20010101
  6. HEPARIN [Concomitant]
     Indication: THROMBOSIS
     Route: 065
     Dates: start: 20000101, end: 20010101
  7. HEPARIN [Concomitant]
     Indication: DEEP VEIN THROMBOSIS
     Route: 065
     Dates: start: 20000101, end: 20010101
  8. PERCOCET [Concomitant]
     Indication: PAIN
     Route: 065
     Dates: start: 19990701, end: 19990701
  9. ASPIRIN AND CARISOPRODOL AND CODEINE PHOSPHATE [Concomitant]
     Indication: PAIN
     Route: 065
     Dates: start: 19990731, end: 19990731
  10. OXYCONTIN [Concomitant]
     Indication: PAIN
     Route: 065
     Dates: start: 19990731, end: 19990731

REACTIONS (3)
  - OVERDOSE [None]
  - PULMONARY EMBOLISM [None]
  - THROMBOSIS [None]
